FAERS Safety Report 24341499 (Version 1)
Quarter: 2024Q3

REPORT INFORMATION
  Report Type: Spontaneous
  Country: ES (occurrence: ES)
  Receive Date: 20240920
  Receipt Date: 20240920
  Transmission Date: 20241016
  Serious: Yes (Other)
  Sender: NOVO NORDISK
  Company Number: None

PATIENT
  Age: 41 Year
  Sex: Male
  Weight: 113 kg

DRUGS (1)
  1. OZEMPIC [Suspect]
     Active Substance: SEMAGLUTIDE
     Indication: Weight control
     Dosage: 1 MG, QW(1 INJECTION 1 TIME A WEEK FOR 4 WEEKS   )
     Dates: start: 20240621

REACTIONS (6)
  - Palpitations [Recovering/Resolving]
  - Myalgia [Recovering/Resolving]
  - Arthritis [Recovering/Resolving]
  - Agitation [Recovered/Resolved]
  - Depression [Recovering/Resolving]
  - Product use in unapproved indication [Unknown]

NARRATIVE: CASE EVENT DATE: 20240621
